FAERS Safety Report 18778938 (Version 9)
Quarter: 2021Q2

REPORT INFORMATION
  Report Type: Report from Study
  Country: US (occurrence: US)
  Receive Date: 20210124
  Receipt Date: 20210626
  Transmission Date: 20210717
  Serious: Yes (Other)
  Sender: FDA-Public Use
  Company Number: NVSC2021US015966

PATIENT
  Age: 50 Year
  Sex: Female

DRUGS (1)
  1. MAYZENT [Suspect]
     Active Substance: SIPONIMOD
     Indication: MULTIPLE SCLEROSIS
     Dosage: 0.25 MG, QD
     Route: 048

REACTIONS (10)
  - Hypoaesthesia [Unknown]
  - Phobia [Unknown]
  - Fall [Not Recovered/Not Resolved]
  - Limb discomfort [Unknown]
  - Dizziness [Recovered/Resolved]
  - Headache [Recovering/Resolving]
  - Multiple sclerosis relapse [Not Recovered/Not Resolved]
  - Anxiety [Unknown]
  - Movement disorder [Unknown]
  - Balance disorder [Not Recovered/Not Resolved]

NARRATIVE: CASE EVENT DATE: 20210120
